FAERS Safety Report 5226942-5 (Version None)
Quarter: 2007Q1

REPORT INFORMATION
  Report Type: 
  Country: None (occurrence: None)
  Receive Date: 20070201
  Receipt Date: 20070201
  Transmission Date: 20070707
  Serious: Yes (Hospitalization)
  Sender: FDA-Public Use
  Company Number: None

PATIENT
  Sex: Female
  Weight: 77.3837 kg

DRUGS (2)
  1. DOCETAXEL [Suspect]
     Indication: NON-SMALL CELL LUNG CANCER
     Dosage: 38 MG WKLY X 7 IV
     Route: 042
     Dates: start: 20051219, end: 20060126
  2. CARBOPLATIN [Suspect]
     Indication: NON-SMALL CELL LUNG CANCER
     Dosage: 220 MG WKLY X 7 IV
     Route: 042
     Dates: start: 20051219, end: 20060126

REACTIONS (2)
  - DISEASE PROGRESSION [None]
  - ILEUS [None]
